FAERS Safety Report 4424229-1 (Version None)
Quarter: 2004Q3

REPORT INFORMATION
  Report Type: 
  Country: None (occurrence: None)
  Receive Date: 20040810
  Receipt Date: 20040810
  Transmission Date: 20050211
  Serious: Yes (Other)
  Sender: FDA-Public Use
  Company Number: None

PATIENT
  Age: 38 Year
  Sex: Male

DRUGS (5)
  1. ENBREL [Suspect]
     Indication: PSORIASIS
     Dosage: ENBREL SQ 2X/WK
     Route: 058
     Dates: start: 20030221
  2. ENBREL [Suspect]
     Indication: PSORIATIC ARTHROPATHY
     Dosage: ENBREL SQ 2X/WK
     Route: 058
     Dates: start: 20030221
  3. PUVA 2X/MONTH [Suspect]
     Indication: PSORIASIS
     Dosage: PUVA 2X/WK
     Dates: end: 20030601
  4. PUVA 2X/MONTH [Suspect]
     Indication: PSORIATIC ARTHROPATHY
     Dosage: PUVA 2X/WK
     Dates: end: 20030601
  5. PROZAC [Concomitant]

REACTIONS (2)
  - CONDYLOMA ACUMINATUM [None]
  - DISEASE RECURRENCE [None]
